FAERS Safety Report 11343979 (Version 1)
Quarter: 2015Q3

REPORT INFORMATION
  Report Type: Spontaneous
  Country: DE (occurrence: DE)
  Receive Date: 20150806
  Receipt Date: 20150806
  Transmission Date: 20151125
  Serious: Yes (Hospitalization)
  Sender: FDA-Public Use
  Company Number: DE-009507513-1507DEU013516

PATIENT
  Age: 72 Year
  Sex: Female

DRUGS (11)
  1. REMERGIL [Suspect]
     Active Substance: MIRTAZAPINE
     Dosage: 30 MG, QD
     Dates: start: 20100107, end: 20100114
  2. REMERGIL [Suspect]
     Active Substance: MIRTAZAPINE
     Dosage: 45 MG, QD
     Dates: start: 20100115, end: 20100121
  3. REMERGIL [Suspect]
     Active Substance: MIRTAZAPINE
     Dosage: 30 MG, QD
     Dates: start: 20100122, end: 20100127
  4. OMEPRAZOLE. [Concomitant]
     Active Substance: OMEPRAZOLE
     Dosage: 20 MG, QD
  5. LACTULOSE. [Concomitant]
     Active Substance: LACTULOSE
     Dosage: 30 ML, QD
     Dates: start: 20100111
  6. NITRENDIPINE [Concomitant]
     Active Substance: NITRENDIPINE
     Dosage: 10 MG, UNK
     Dates: end: 20100119
  7. ESIDRIX [Concomitant]
     Active Substance: HYDROCHLOROTHIAZIDE
     Dosage: 12.5 MG, QD
     Dates: start: 20100117
  8. DELIX (RAMIPRIL) [Concomitant]
     Active Substance: RAMIPRIL
     Dosage: 2.5 MG, QD
     Dates: start: 20100120
  9. DIAZEPAM. [Concomitant]
     Active Substance: DIAZEPAM
     Dosage: 5 MG, UNK
     Dates: start: 20100104, end: 20100119
  10. REMERGIL [Suspect]
     Active Substance: MIRTAZAPINE
     Indication: DEPRESSION
     Dosage: 15 MG, QD
     Dates: start: 20100104, end: 20100106
  11. ZOPICLONE [Concomitant]
     Active Substance: ZOPICLONE
     Dosage: 3.75 MG, QD
     Dates: start: 20100105

REACTIONS (2)
  - Oedema [Recovered/Resolved]
  - Urinary hesitation [Recovered/Resolved]

NARRATIVE: CASE EVENT DATE: 20100116
